FAERS Safety Report 12423608 (Version 1)
Quarter: 2016Q2

REPORT INFORMATION
  Report Type: Spontaneous
  Country: US (occurrence: US)
  Receive Date: 20160601
  Receipt Date: 20160601
  Transmission Date: 20160815
  Serious: No
  Sender: FDA-Public Use
  Company Number: US-NOVEN PHARMACEUTICALS, INC.-US2015000626

PATIENT
  Sex: Male

DRUGS (1)
  1. DAYTRANA [Suspect]
     Active Substance: METHYLPHENIDATE
     Indication: PRODUCT USED FOR UNKNOWN INDICATION
     Dosage: UNK, UNKNOWN
     Route: 062
     Dates: start: 20150713

REACTIONS (6)
  - Product quality issue [Unknown]
  - Drug administration error [Unknown]
  - Drug effect variable [Unknown]
  - Incorrect product storage [Unknown]
  - Disturbance in attention [Unknown]
  - Fatigue [Unknown]
